FAERS Safety Report 23565164 (Version 7)
Quarter: 2025Q4

REPORT INFORMATION
  Report Type: Spontaneous
  Country: US (occurrence: US)
  Receive Date: 20240226
  Receipt Date: 20251001
  Transmission Date: 20260118
  Serious: Yes (Other)
  Sender: PFIZER
  Company Number: US-PFIZER INC-PV202400019694

PATIENT
  Age: 75 Year
  Sex: Female

DRUGS (3)
  1. IBRANCE [Suspect]
     Active Substance: PALBOCICLIB
     Indication: Breast cancer female
     Dosage: DAYS 1-21 OF 28 DAY CYCLE
     Route: 048
     Dates: end: 20250716
  2. IBRANCE [Suspect]
     Active Substance: PALBOCICLIB
     Indication: Type 2 diabetes mellitus
     Dosage: UNK
     Dates: end: 202508
  3. IBRANCE [Suspect]
     Active Substance: PALBOCICLIB
     Dosage: DAYS 1-21 OF 28 DAY CYCLE

REACTIONS (5)
  - Device related infection [Unknown]
  - Tooth extraction [Unknown]
  - Eye infection [Unknown]
  - Viral infection [Unknown]
  - Spondylitis [Unknown]
